FAERS Safety Report 25529517 (Version 1)
Quarter: 2025Q3

REPORT INFORMATION
  Report Type: Spontaneous
  Country: US (occurrence: US)
  Receive Date: 20250708
  Receipt Date: 20250708
  Transmission Date: 20251021
  Serious: Yes (Other)
  Sender: NOVO NORDISK
  Company Number: US-NOVOPROD-1471271

PATIENT
  Sex: Female

DRUGS (2)
  1. ISOSORBIDE MONONITRATE [Concomitant]
     Active Substance: ISOSORBIDE MONONITRATE
     Indication: Product used for unknown indication
  2. WEGOVY [Suspect]
     Active Substance: SEMAGLUTIDE
     Indication: Product used for unknown indication
     Dates: end: 202504

REACTIONS (11)
  - Coronary artery occlusion [Unknown]
  - Condition aggravated [Unknown]
  - Vomiting [Unknown]
  - Diarrhoea [Unknown]
  - Weight increased [Unknown]
  - Arthralgia [Unknown]
  - Viral infection [Unknown]
  - Dyspnoea [Unknown]
  - Depressed mood [Unknown]
  - Pain in extremity [Unknown]
  - Apathy [Unknown]

NARRATIVE: CASE EVENT DATE: 20250101
